FAERS Safety Report 7897365-5 (Version None)
Quarter: 2011Q4

REPORT INFORMATION
  Report Type: 
  Country: None (occurrence: None)
  Receive Date: 20111107
  Receipt Date: 20111027
  Transmission Date: 20120403
  Serious: Yes (Hospitalization)
  Sender: FDA-Public Use
  Company Number: US-AMGEN-USASP2011055958

PATIENT
  Sex: Female

DRUGS (2)
  1. NEUPOGEN [Suspect]
  2. NEUPOGEN [Suspect]
     Indication: INFANTILE GENETIC AGRANULOCYTOSIS
     Dosage: 300 MUG, BID
     Dates: start: 19910101

REACTIONS (3)
  - SKIN INFECTION [None]
  - NEUTROPENIA [None]
  - FURUNCLE [None]
